FAERS Safety Report 5208873-X (Version None)
Quarter: 2007Q1

REPORT INFORMATION
  Report Type: 
  Country: None (occurrence: None)
  Receive Date: 20070116
  Receipt Date: 20070105
  Transmission Date: 20070707
  Serious: Yes (Hospitalization, Other)
  Sender: FDA-Public Use
  Company Number: DK-JNJFOC-20061204863

PATIENT
  Sex: Male
  Weight: 82 kg

DRUGS (4)
  1. REMICADE [Suspect]
     Indication: PSORIASIS
     Route: 042
  2. PERINDOPRIL ERBUMINE [Concomitant]
     Route: 065
  3. CONTALGIN [Concomitant]
     Route: 065
  4. NOBLIGAN [Concomitant]
     Route: 065

REACTIONS (6)
  - BLOOD CREATININE INCREASED [None]
  - BODY TEMPERATURE DECREASED [None]
  - MALAISE [None]
  - NAUSEA [None]
  - TOOTH INFECTION [None]
  - VOMITING [None]
